FAERS Safety Report 4377480-3 (Version None)
Quarter: 2004Q2

REPORT INFORMATION
  Report Type: 
  Country: None (occurrence: None)
  Receive Date: 20040615
  Receipt Date: 20040604
  Transmission Date: 20050107
  Serious: Yes (Other)
  Sender: FDA-Public Use
  Company Number: PHNU2004DE02032

PATIENT
  Sex: Male

DRUGS (6)
  1. DESFERAL [Suspect]
     Indication: HAEMOSIDEROSIS
     Route: 065
     Dates: start: 20040501, end: 20040501
  2. SANDIMMUNE [Concomitant]
     Route: 065
  3. NITROLINGUAL [Concomitant]
  4. BISOPROLOL [Concomitant]
     Dosage: 5 MG, QD
     Route: 048
  5. GLYBURIDE [Concomitant]
     Route: 048
  6. OMEPRAZOLE [Concomitant]
     Dosage: UNK, UNK
     Route: 048

REACTIONS (3)
  - ANGINA PECTORIS [None]
  - DRUG EFFECT DECREASED [None]
  - SERUM FERRITIN INCREASED [None]
